FAERS Safety Report 8078667-9 (Version None)
Quarter: 2012Q1

REPORT INFORMATION
  Report Type: 
  Country: None (occurrence: None)
  Receive Date: 20120124
  Receipt Date: 20120109
  Transmission Date: 20120608
  Serious: Yes (Hospitalization)
  Sender: FDA-Public Use
  Company Number: AUR-APL-2012-00418

PATIENT
  Age: 69 Year
  Sex: Male

DRUGS (14)
  1. FLUTICASONE PROPIONATE [Concomitant]
  2. METFORMIN HCL [Concomitant]
  3. PREDNISOLONE [Concomitant]
  4. PRIMIDONE [Concomitant]
  5. FUROSEMIDE [Concomitant]
  6. GLICLAZIDE [Concomitant]
  7. AMINOPHYLLINE [Concomitant]
  8. CALCICHEW D3 (LEKOVIT CA) [Concomitant]
  9. LANSOPRAZOLE [Concomitant]
  10. ATORVASTATIN [Concomitant]
  11. PREDNISOLONE [Suspect]
     Indication: PRODUCT USED FOR UNKNOWN INDICATION
     Dosage: (5 MG), ORAL
     Route: 048
  12. ALENDRONIC ACID (ALENDRONIC ACID) [Suspect]
     Indication: PRODUCT USED FOR UNKNOWN INDICATION
     Dosage: (70 MG), ORAL
     Route: 048
     Dates: start: 20110101
  13. ADALAT [Concomitant]
  14. TOLTERODINE TARTRATE [Concomitant]

REACTIONS (6)
  - GASTRITIS [None]
  - OESOPHAGEAL ULCER [None]
  - GASTROOESOPHAGEAL REFLUX DISEASE [None]
  - WEIGHT DECREASED [None]
  - GASTRIC ULCER [None]
  - GASTROINTESTINAL ULCER [None]
